FAERS Safety Report 8518128-3 (Version None)
Quarter: 2012Q3

REPORT INFORMATION
  Report Type: 
  Country: None (occurrence: None)
  Receive Date: 20120712
  Receipt Date: 20120712
  Transmission Date: 20120928
  Serious: No
  Sender: FDA-Public Use
  Company Number: None

PATIENT
  Age: 47 Year
  Sex: Female
  Weight: 45 kg

DRUGS (4)
  1. PERJECTA 30 MG/ML - 14 ML VIAL [Suspect]
     Indication: BREAST CANCER STAGE IV
     Dosage: 840 MG IV
     Route: 042
     Dates: start: 20120613
  2. SODIUM CHLORIDE [Concomitant]
  3. TYLENOL [Concomitant]
  4. HERCEPTIN [Concomitant]

REACTIONS (1)
  - DEATH [None]
